FAERS Safety Report 6109062-7 (Version None)
Quarter: 2009Q1

REPORT INFORMATION
  Report Type: 
  Country: None (occurrence: None)
  Receive Date: 20090309
  Receipt Date: 20090309
  Transmission Date: 20090719
  Serious: Yes (Other)
  Sender: FDA-Public Use
  Company Number: None

PATIENT
  Sex: Female
  Weight: 80.2867 kg

DRUGS (2)
  1. METADATE CD [Suspect]
     Indication: ATTENTION DEFICIT/HYPERACTIVITY DISORDER
     Dosage: 10 MG QD PO
     Route: 048
     Dates: start: 20090213, end: 20090301
  2. ORTHO-CEPT [Concomitant]

REACTIONS (2)
  - GINGIVAL ERYTHEMA [None]
  - GINGIVAL PAIN [None]
